FAERS Safety Report 6105280-2 (Version None)
Quarter: 2009Q1

REPORT INFORMATION
  Report Type: 
  Country: None (occurrence: None)
  Receive Date: 20090303
  Receipt Date: 20090224
  Transmission Date: 20090719
  Serious: Yes (Death, Hospitalization)
  Sender: FDA-Public Use
  Company Number: 2009US000517

PATIENT
  Age: 61 Year
  Sex: Male

DRUGS (3)
  1. PROGRAF [Suspect]
     Indication: LUNG TRANSPLANT
     Dosage: 3 MG BID ORAL
     Route: 048
  2. MYCORTIC [Concomitant]
  3. PREDNISONE TAB [Concomitant]

REACTIONS (1)
  - DEATH [None]
